FAERS Safety Report 15061789 (Version 2)
Quarter: 2019Q2

REPORT INFORMATION
  Report Type: Report from Study
  Country: US (occurrence: US)
  Receive Date: 20180625
  Receipt Date: 20190418
  Transmission Date: 20190711
  Serious: Yes (Other)
  Sender: FDA-Public Use
  Company Number: US-ROCHE-1951611

PATIENT
  Age: 10 Year
  Sex: Male
  Weight: 26.7 kg

DRUGS (9)
  1. LISINOPRIL. [Concomitant]
     Active Substance: LISINOPRIL
     Route: 048
     Dates: start: 20160516
  2. NUTROPIN AQ [Suspect]
     Active Substance: SOMATROPIN
     Indication: CHRONIC KIDNEY DISEASE
     Dosage: START DATE: 27/MAR/2018
     Route: 058
  3. CELLCEPT [Suspect]
     Active Substance: MYCOPHENOLATE MOFETIL\MYCOPHENOLATE MOFETIL HYDROCHLORIDE
     Indication: PRODUCT USED FOR UNKNOWN INDICATION
     Dosage: START DATE: 31/MAY/2018?FOR 30 DAYS
     Route: 048
  4. NUTROPIN AQ [Suspect]
     Active Substance: SOMATROPIN
     Route: 058
  5. TACROLIMUS. [Concomitant]
     Active Substance: TACROLIMUS
     Route: 048
  6. FERROUS SULFATE. [Concomitant]
     Active Substance: FERROUS SULFATE
     Route: 048
     Dates: start: 20170823
  7. CYPROHEPTADINE. [Concomitant]
     Active Substance: CYPROHEPTADINE
     Route: 048
  8. PREDNISONE. [Concomitant]
     Active Substance: PREDNISONE
     Route: 048
     Dates: start: 20180821
  9. TACROLIMUS. [Concomitant]
     Active Substance: TACROLIMUS
     Route: 048
     Dates: start: 20180824

REACTIONS (21)
  - Red blood cell count decreased [Unknown]
  - Blood urea increased [Unknown]
  - Growth failure [Unknown]
  - Headache [Unknown]
  - Renal impairment [Unknown]
  - Weight gain poor [Unknown]
  - Proteinuria [Unknown]
  - Immunosuppression [Unknown]
  - Haematocrit decreased [Unknown]
  - Hepatic enzyme increased [Unknown]
  - Growth retardation [Unknown]
  - Blood alkaline phosphatase decreased [Unknown]
  - Underweight [Unknown]
  - Renal failure [Unknown]
  - Blood creatinine increased [Unknown]
  - Hypertension [Unknown]
  - Hyperparathyroidism [Unknown]
  - Renal tubular acidosis [Unknown]
  - BK virus infection [Unknown]
  - Haemoglobin decreased [Unknown]
  - Alanine aminotransferase increased [Unknown]

NARRATIVE: CASE EVENT DATE: 20170605
